FAERS Safety Report 18807935 (Version 2)
Quarter: 2022Q3

REPORT INFORMATION
  Report Type: Spontaneous
  Country: JP (occurrence: JP)
  Receive Date: 20210129
  Receipt Date: 20220714
  Transmission Date: 20221026
  Serious: Yes (Hospitalization, Other)
  Sender: FDA-Public Use
  Company Number: JP-GSKNCCC-CASE-01132282_AE-39797

PATIENT

DRUGS (1)
  1. SERETIDE [Suspect]
     Active Substance: FLUTICASONE PROPIONATE\SALMETEROL XINAFOATE
     Dosage: UNK
     Route: 055

REACTIONS (2)
  - Hospitalisation [Unknown]
  - Dementia [Unknown]
